FAERS Safety Report 4863156-2 (Version None)
Quarter: 2005Q4

REPORT INFORMATION
  Report Type: 
  Country: None (occurrence: None)
  Receive Date: 20051214
  Receipt Date: 20051203
  Transmission Date: 20060501
  Serious: Yes (Other)
  Sender: FDA-Public Use
  Company Number: 200511048BBE

PATIENT
  Sex: Female

DRUGS (2)
  1. GAMUNEX [Suspect]
     Dosage: INTRAVENOUS
     Route: 042
  2. GAMUNEX [Suspect]

REACTIONS (2)
  - HAEMOLYSIS [None]
  - IMMUNE SYSTEM DISORDER [None]
